FAERS Safety Report 19423746 (Version 1)
Quarter: 2021Q2

REPORT INFORMATION
  Report Type: Spontaneous
  Country: US (occurrence: US)
  Receive Date: 20210616
  Receipt Date: 20210616
  Transmission Date: 20210717
  Serious: No
  Sender: FDA-Public Use
  Company Number: US-CELGENEUS-USA-20210602170

PATIENT
  Sex: Female

DRUGS (7)
  1. REVLIMID [Suspect]
     Active Substance: LENALIDOMIDE
     Dosage: 10 MILLIGRAM
     Route: 048
     Dates: start: 202012
  2. REVLIMID [Suspect]
     Active Substance: LENALIDOMIDE
     Dosage: 5 MILLIGRAM
     Route: 048
     Dates: start: 202104
  3. REVLIMID [Suspect]
     Active Substance: LENALIDOMIDE
     Indication: PLASMA CELL MYELOMA
     Dosage: 25 MILLIGRAM
     Route: 048
     Dates: start: 201609
  4. REVLIMID [Suspect]
     Active Substance: LENALIDOMIDE
     Dosage: 5 MILLIGRAM
     Route: 048
     Dates: start: 20210520
  5. REVLIMID [Suspect]
     Active Substance: LENALIDOMIDE
     Dosage: 10?5 MILLIGRAM
     Route: 048
     Dates: start: 201711
  6. REVLIMID [Suspect]
     Active Substance: LENALIDOMIDE
     Dosage: 10?5 MILLIGRAM
     Route: 048
     Dates: start: 201809
  7. REVLIMID [Suspect]
     Active Substance: LENALIDOMIDE
     Dosage: 2.5?10 MILLIGRAM
     Route: 048
     Dates: start: 201908

REACTIONS (1)
  - Dyspepsia [Unknown]
